FAERS Safety Report 9624419 (Version 3)
Quarter: 2013Q4

REPORT INFORMATION
  Report Type: Spontaneous
  Country: JP (occurrence: JP)
  Receive Date: 20131015
  Receipt Date: 20131223
  Transmission Date: 20140711
  Serious: Yes (Hospitalization)
  Sender: FDA-Public Use
  Company Number: JP-GLAXOSMITHKLINE-B0930486A

PATIENT
  Age: 71 Year
  Sex: Female

DRUGS (10)
  1. VALTREX [Suspect]
     Indication: HERPES ZOSTER
     Dosage: 500MG PER DAY
     Route: 048
     Dates: start: 20131005, end: 20131005
  2. ATELEC [Concomitant]
     Indication: HYPERTENSION
     Dosage: 10MG TWICE PER DAY
     Route: 048
  3. WARFARIN [Concomitant]
     Indication: AORTIC VALVE REPLACEMENT
     Dosage: 1MG PER DAY
     Route: 048
  4. REGPARA [Concomitant]
     Indication: HYPERTENSION
     Dosage: 25MG PER DAY
     Route: 048
  5. UNKNOWN [Concomitant]
     Indication: HYPERPARATHYROIDISM SECONDARY
     Dosage: 40MG PER DAY
     Route: 048
  6. CARDENALIN [Concomitant]
     Indication: HYPERTENSION
     Dosage: 2MG PER DAY
     Route: 048
  7. SENNOSIDE [Concomitant]
     Indication: CONSTIPATION
     Dosage: 12MG PER DAY
     Route: 048
  8. ROHYPNOL [Concomitant]
     Indication: INSOMNIA
     Dosage: 1MG PER DAY
     Route: 048
  9. ARASENA-A [Concomitant]
     Route: 061
     Dates: start: 20131008
  10. LANSOPRAZOLE [Concomitant]
     Route: 048

REACTIONS (5)
  - Altered state of consciousness [Recovered/Resolved]
  - Meningitis [Unknown]
  - Nervous system disorder [Recovering/Resolving]
  - Tremor [Recovered/Resolved]
  - Overdose [Unknown]
